FAERS Safety Report 15706737 (Version 3)
Quarter: 2019Q1

REPORT INFORMATION
  Report Type: Spontaneous
  Country: US (occurrence: US)
  Receive Date: 20181210
  Receipt Date: 20190115
  Transmission Date: 20190417
  Serious: Yes (Death)
  Sender: FDA-Public Use
  Company Number: US-CELGENEUS-USA-20181202087

PATIENT
  Age: 91 Year
  Sex: Male

DRUGS (1)
  1. REVLIMID [Suspect]
     Active Substance: LENALIDOMIDE
     Indication: PLASMA CELL MYELOMA
     Dosage: 15 MILLIGRAM
     Route: 048
     Dates: start: 20180806

REACTIONS (3)
  - Pneumonia [Fatal]
  - Respiratory failure [Fatal]
  - Sepsis [Fatal]

NARRATIVE: CASE EVENT DATE: 20181205
